FAERS Safety Report 22209980 (Version 1)
Quarter: 2023Q2

REPORT INFORMATION
  Report Type: Spontaneous
  Country: AU (occurrence: AU)
  Receive Date: 20230414
  Receipt Date: 20230414
  Transmission Date: 20230722
  Serious: Yes (Other)
  Sender: FDA-Public Use
  Company Number: AU-002147023-NVSC2023AU080614

PATIENT
  Age: 29 Year
  Sex: Male

DRUGS (6)
  1. ETOPOSIDE [Suspect]
     Active Substance: ETOPOSIDE
     Indication: Haemophagocytic lymphohistiocytosis
     Dosage: UNK
     Route: 065
  2. DEXAMETHASONE [Suspect]
     Active Substance: DEXAMETHASONE
     Indication: Haemophagocytic lymphohistiocytosis
     Dosage: UNK
     Route: 065
  3. ANAKINRA [Suspect]
     Active Substance: ANAKINRA
     Indication: Haemophagocytic lymphohistiocytosis
     Dosage: UNK
     Route: 065
  4. ANAKINRA [Suspect]
     Active Substance: ANAKINRA
     Dosage: UNK (RESTARTED AT A HIGHER DOSE)
     Route: 065
  5. ANAKINRA [Suspect]
     Active Substance: ANAKINRA
     Dosage: UNK, TID (INCREASED ANAKINRA TO TDS)
     Route: 065
  6. HUMAN IMMUNOGLOBULIN G [Suspect]
     Active Substance: HUMAN IMMUNOGLOBULIN G
     Indication: Haemophagocytic lymphohistiocytosis
     Dosage: UNK
     Route: 042

REACTIONS (5)
  - Cytomegalovirus infection [Unknown]
  - Haemophagocytic lymphohistiocytosis [Unknown]
  - Condition aggravated [Unknown]
  - Hepatosplenomegaly [Unknown]
  - Pyrexia [Unknown]
